FAERS Safety Report 9423084 (Version 1)
Quarter: 2013Q3

REPORT INFORMATION
  Report Type: Report from Study
  Country: FR (occurrence: FR)
  Receive Date: 20130726
  Receipt Date: 20130726
  Transmission Date: 20140515
  Serious: Yes (Death, Other)
  Sender: FDA-Public Use
  Company Number: FR-PFIZER INC-2013213024

PATIENT
  Age: 20 Year
  Sex: Female

DRUGS (6)
  1. RIFAMPICIN [Suspect]
     Indication: PULMONARY TUBERCULOSIS
     Dosage: HALF DOSE EVERY 2 DAYS
  2. RIFAMPICIN [Suspect]
     Dosage: UNK
  3. OFLOXACIN [Concomitant]
     Indication: PULMONARY TUBERCULOSIS
     Dosage: UNK
  4. ETHAMBUTOL [Concomitant]
     Indication: PULMONARY TUBERCULOSIS
     Dosage: UNK
  5. TACROLIMUS [Concomitant]
     Indication: IMMUNOSUPPRESSANT DRUG THERAPY
     Dosage: UNK
  6. PREDNISOLONE [Concomitant]
     Indication: IMMUNOSUPPRESSANT DRUG THERAPY
     Dosage: UNK

REACTIONS (1)
  - Transplant rejection [Fatal]
